FAERS Safety Report 5235565-3 (Version None)
Quarter: 2007Q1

REPORT INFORMATION
  Report Type: 
  Country: None (occurrence: None)
  Receive Date: 20070212
  Receipt Date: 20070131
  Transmission Date: 20070707
  Serious: Yes (Other)
  Sender: FDA-Public Use
  Company Number: PHBS2006IT13916

PATIENT
  Age: 82 Year
  Sex: Male

DRUGS (1)
  1. ZOMETA [Suspect]
     Indication: MULTIPLE MYELOMA
     Dosage: 4 MG, EVERY 3 WEEKS
     Route: 042

REACTIONS (8)
  - BIOPSY [None]
  - BONE DISORDER [None]
  - HYPERBARIC OXYGEN THERAPY [None]
  - OSTEOLYSIS [None]
  - OSTEONECROSIS [None]
  - PAIN [None]
  - PRIMARY SEQUESTRUM [None]
  - PYREXIA [None]
